FAERS Safety Report 9795758 (Version 1)
Quarter: 2014Q1

REPORT INFORMATION
  Report Type: Spontaneous
  Country: US (occurrence: US)
  Receive Date: 20140103
  Receipt Date: 20140103
  Transmission Date: 20141002
  Serious: Yes (Other)
  Sender: FDA-Public Use
  Company Number: PHEH2013US026557

PATIENT
  Sex: Male

DRUGS (2)
  1. TEKTURNA [Suspect]
     Indication: HYPERTENSION
     Dosage: 300 MG, QD
     Route: 048
     Dates: start: 2009, end: 20120115
  2. SYMLIN [Concomitant]
     Indication: DIABETES MELLITUS

REACTIONS (2)
  - Transient ischaemic attack [Unknown]
  - Blood glucose abnormal [Unknown]
